FAERS Safety Report 7647797-5 (Version None)
Quarter: 2011Q3

REPORT INFORMATION
  Report Type: 
  Country: None (occurrence: None)
  Receive Date: 20110726
  Receipt Date: 20110711
  Transmission Date: 20111222
  Serious: Yes (Hospitalization)
  Sender: FDA-Public Use
  Company Number: AUR-APL-2011-04262

PATIENT
  Age: 59 Year
  Sex: Male

DRUGS (8)
  1. XATRAL (ALFUZOSIN) [Concomitant]
  2. DUPHALAC [Concomitant]
  3. FERROUS SULFATE TAB [Concomitant]
  4. EFFEXOR [Concomitant]
  5. ALDACTONE [Suspect]
     Indication: PRODUCT USED FOR UNKNOWN INDICATION
     Dosage: ORAL
     Route: 048
     Dates: start: 20110401, end: 20110510
  6. LASIX [Suspect]
     Indication: PRODUCT USED FOR UNKNOWN INDICATION
     Dosage: 1D, ORAL
     Dates: end: 20110515
  7. METFORMIN HCL [Suspect]
     Indication: TYPE 2 DIABETES MELLITUS
     Dosage: ORAL
     Route: 048
  8. JANUVIA [Concomitant]

REACTIONS (4)
  - OVERDOSE [None]
  - RENAL IMPAIRMENT [None]
  - RENAL FAILURE [None]
  - LACTIC ACIDOSIS [None]
